FAERS Safety Report 10167820 (Version 1)
Quarter: 2014Q2

REPORT INFORMATION
  Report Type: Spontaneous
  Country: US (occurrence: US)
  Receive Date: 20140512
  Receipt Date: 20140512
  Transmission Date: 20141212
  Serious: Yes (Hospitalization)
  Sender: FDA-Public Use
  Company Number: US-PFIZER INC-2014129615

PATIENT
  Age: 47 Year
  Sex: Male
  Weight: 124.72 kg

DRUGS (3)
  1. GABAPENTIN [Suspect]
     Indication: HERPES ZOSTER
     Dosage: 300 MG, UNK
  2. HYDROXYZINE PAMOATE [Suspect]
     Indication: HERPES ZOSTER
     Dosage: 45 MG, UNK
  3. INSULIN [Concomitant]
     Indication: DIABETES MELLITUS
     Dosage: UNK

REACTIONS (2)
  - Pneumonia [Unknown]
  - Varicella [Unknown]
